FAERS Safety Report 6262804-2 (Version None)
Quarter: 2009Q3

REPORT INFORMATION
  Report Type: 
  Country: None (occurrence: None)
  Receive Date: 20090709
  Receipt Date: 20090701
  Transmission Date: 20100115
  Serious: Yes (Hospitalization)
  Sender: FDA-Public Use
  Company Number: CH-MERCK-0907CHE00001

PATIENT
  Age: 69 Year
  Sex: Male

DRUGS (5)
  1. MODURETIC 5-50 [Suspect]
     Route: 048
     Dates: end: 20081214
  2. VALSARTAN [Suspect]
     Route: 048
     Dates: end: 20081214
  3. CARVEDILOL [Concomitant]
     Route: 048
  4. ALLOPURINOL [Concomitant]
     Route: 048
  5. [COMPOSITION UNSPECIFIED] [Concomitant]
     Indication: DIABETES MELLITUS
     Route: 065

REACTIONS (3)
  - HYPERKALAEMIA [None]
  - METABOLIC ACIDOSIS [None]
  - SINUS ARREST [None]
